FAERS Safety Report 5692731-0 (Version None)
Quarter: 2008Q2

REPORT INFORMATION
  Report Type: 
  Country: None (occurrence: None)
  Receive Date: 20080401
  Receipt Date: 20080320
  Transmission Date: 20081010
  Serious: Yes (Death)
  Sender: FDA-Public Use
  Company Number: KADN20080017

PATIENT
  Age: 50 Year
  Sex: Female
  Weight: 107.5025 kg

DRUGS (4)
  1. KADIAN [Suspect]
     Indication: DEATH
     Dosage: 60 MG, 1 CAPSULES DAILY, PER ORAL
     Route: 048
     Dates: start: 20061101
  2. CYMBALTA [Concomitant]
  3. LORAZEPAM [Concomitant]
  4. METOPROLOL [Concomitant]

REACTIONS (1)
  - DEATH [None]
